FAERS Safety Report 23151411 (Version 2)
Quarter: 2024Q1

REPORT INFORMATION
  Report Type: Report from Study
  Country: US (occurrence: US)
  Receive Date: 20231107
  Receipt Date: 20240111
  Transmission Date: 20240409
  Serious: No
  Sender: FDA-Public Use
  Company Number: US-002147023-NVSC2023US236438

PATIENT
  Sex: Female

DRUGS (2)
  1. COSENTYX [Suspect]
     Active Substance: SECUKINUMAB
     Indication: Pruritus
     Dosage: 150 MG, QMO (OTHER DOSAGE 300 MG)
     Route: 058
     Dates: start: 20230615, end: 20231102
  2. COSENTYX [Suspect]
     Active Substance: SECUKINUMAB
     Indication: Urticaria

REACTIONS (2)
  - Abdominal pain upper [Unknown]
  - Hypersensitivity [Unknown]
